FAERS Safety Report 17283600 (Version 1)
Quarter: 2020Q1

REPORT INFORMATION
  Report Type: Spontaneous
  Country: US (occurrence: US)
  Receive Date: 20200117
  Receipt Date: 20200117
  Transmission Date: 20200409
  Serious: Yes (Hospitalization, Other)
  Sender: FDA-Public Use
  Company Number: US-ACTELION-A-CH2020-200499

PATIENT
  Age: 36 Year
  Sex: Female

DRUGS (4)
  1. TREPROSTINIL. [Concomitant]
     Active Substance: TREPROSTINIL
     Dosage: 37 NG/KG, PER MIN
     Route: 058
  2. OPSUMIT [Suspect]
     Active Substance: MACITENTAN
     Indication: PORTOPULMONARY HYPERTENSION
     Dosage: 10 MG, QD
     Route: 048
  3. TREPROSTINIL. [Concomitant]
     Active Substance: TREPROSTINIL
     Dosage: 27 NG/KG, PER MIN
     Route: 058
  4. TREPROSTINIL. [Concomitant]
     Active Substance: TREPROSTINIL
     Indication: PORTOPULMONARY HYPERTENSION
     Dosage: 38 NG/KG, PER MIN
     Route: 058

REACTIONS (10)
  - Platelet dysfunction [Unknown]
  - Pulmonary alveolar haemorrhage [Recovered/Resolved]
  - Thrombocytopenia [Recovering/Resolving]
  - Oesophageal varices haemorrhage [Recovering/Resolving]
  - Malnutrition [Unknown]
  - Oedema peripheral [Recovered/Resolved]
  - Cardiac failure high output [Recovered/Resolved]
  - Hypoxia [Recovered/Resolved]
  - Haemoptysis [Recovered/Resolved]
  - Lung opacity [Recovered/Resolved]
